FAERS Safety Report 13934906 (Version 1)
Quarter: 2017Q3

REPORT INFORMATION
  Report Type: Spontaneous
  Country: US (occurrence: None)
  Receive Date: 20170901
  Receipt Date: 20170901
  Transmission Date: 20171127
  Serious: No
  Sender: FDA-Public Use
  Company Number: None

PATIENT
  Age: 56 Year
  Sex: Female

DRUGS (1)
  1. AZITHROMYCIN ANHYDROUS. [Suspect]
     Active Substance: AZITHROMYCIN ANHYDROUS
     Indication: PNEUMONIA
     Dates: start: 20170723, end: 20170723

REACTIONS (3)
  - Electrocardiogram T wave inversion [None]
  - Electrocardiogram QT prolonged [None]
  - Palpitations [None]

NARRATIVE: CASE EVENT DATE: 20170723
